FAERS Safety Report 6710359-8 (Version None)
Quarter: 2010Q2

REPORT INFORMATION
  Report Type: 
  Country: None (occurrence: None)
  Receive Date: 20100504
  Receipt Date: 20100420
  Transmission Date: 20101027
  Serious: Yes (Other)
  Sender: FDA-Public Use
  Company Number: DE-MYLANLABS-2010S1006811

PATIENT
  Age: 43 Year
  Sex: Female
  Weight: 70 kg

DRUGS (3)
  1. MIRTAZAPINE [Suspect]
     Indication: INTENTIONAL OVERDOSE
     Route: 048
  2. DOMINAL [Suspect]
     Indication: INTENTIONAL OVERDOSE
     Route: 048
  3. PREDNISONE TAB [Suspect]
     Indication: INTENTIONAL OVERDOSE
     Route: 048

REACTIONS (4)
  - CONFUSIONAL STATE [None]
  - FATIGUE [None]
  - INTENTIONAL OVERDOSE [None]
  - SUICIDE ATTEMPT [None]
